FAERS Safety Report 17114052 (Version 2)
Quarter: 2020Q1

REPORT INFORMATION
  Report Type: Spontaneous
  Country: CA (occurrence: CA)
  Receive Date: 20191205
  Receipt Date: 20200123
  Transmission Date: 20200409
  Serious: Yes (Other)
  Sender: FDA-Public Use
  Company Number: CA-ABBVIE-19K-028-3180689-00

PATIENT
  Age: 13 Year
  Sex: Male
  Weight: 60.3 kg

DRUGS (1)
  1. HUMIRA [Suspect]
     Active Substance: ADALIMUMAB
     Indication: CROHN^S DISEASE
     Route: 058
     Dates: start: 201703, end: 201705

REACTIONS (1)
  - Osteosarcoma [Recovered/Resolved]

NARRATIVE: CASE EVENT DATE: 201705
